FAERS Safety Report 13180779 (Version 1)
Quarter: 2017Q1

REPORT INFORMATION
  Report Type: Spontaneous
  Country: US (occurrence: US)
  Receive Date: 20170202
  Receipt Date: 20170202
  Transmission Date: 20170428
  Serious: No
  Sender: FDA-Public Use
  Company Number: US-SMITH AND NEPHEW, INC-2016SMT00048

PATIENT
  Age: 83 Year
  Sex: Female
  Weight: 80.73 kg

DRUGS (6)
  1. METFORMIN [Concomitant]
     Active Substance: METFORMIN HYDROCHLORIDE
     Dosage: 1000 MG, 2X/DAY
  2. FISH OIL [Concomitant]
     Active Substance: FISH OIL
     Dosage: UNK, 2X/DAY
  3. GLIPIZIDE. [Concomitant]
     Active Substance: GLIPIZIDE
     Dosage: 5 MG, 2X/DAY
  4. PLAVIX [Concomitant]
     Active Substance: CLOPIDOGREL BISULFATE
     Dosage: 75 MG, 1X/DAY
  5. COATED ASPIRIN [Concomitant]
     Active Substance: ASPIRIN
     Dosage: 325 MG, 2X/DAY
  6. REGRANEX [Suspect]
     Active Substance: BECAPLERMIN
     Indication: WOUND
     Dosage: UNK UNK, 1X/DAY
     Route: 061
     Dates: start: 20160113

REACTIONS (2)
  - Incorrect drug administration duration [Unknown]
  - Application site pain [Unknown]

NARRATIVE: CASE EVENT DATE: 20160113
